FAERS Safety Report 7950025-4 (Version None)
Quarter: 2011Q4

REPORT INFORMATION
  Report Type: 
  Country: None (occurrence: None)
  Receive Date: 20111130
  Receipt Date: 20111122
  Transmission Date: 20120403
  Serious: Yes (Hospitalization, Other)
  Sender: FDA-Public Use
  Company Number: US-ABBOTT-11P-163-0876861-00

PATIENT
  Sex: Female
  Weight: 68.1 kg

DRUGS (4)
  1. PAROXETINE HCL [Concomitant]
     Indication: DEPRESSION
     Dates: end: 20101001
  2. HUMIRA [Suspect]
     Indication: ANKYLOSING SPONDYLITIS
     Route: 058
     Dates: start: 20100301, end: 20101001
  3. WELLBUTRIN [Concomitant]
     Indication: DEPRESSION
  4. BUSPAR [Concomitant]
     Indication: DEPRESSION
     Dates: end: 20101001

REACTIONS (10)
  - APPARENT DEATH [None]
  - ULTRASOUND SCAN ABNORMAL [None]
  - FLUID RETENTION [None]
  - ALOPECIA [None]
  - DYSPNOEA [None]
  - ECLAMPSIA [None]
  - CONVULSION [None]
  - LOSS OF CONSCIOUSNESS [None]
  - BLOOD PRESSURE INCREASED [None]
  - PLACENTAL DISORDER [None]
